FAERS Safety Report 8359598-3 (Version None)
Quarter: 2012Q2

REPORT INFORMATION
  Report Type: 
  Country: None (occurrence: None)
  Receive Date: 20120515
  Receipt Date: 20120504
  Transmission Date: 20120825
  Serious: Yes (Hospitalization)
  Sender: FDA-Public Use
  Company Number: US-JNJFOC-20120506734

PATIENT
  Sex: Female
  Weight: 59.6 kg

DRUGS (9)
  1. REMICADE [Suspect]
     Route: 042
     Dates: start: 20030721, end: 20080421
  2. METHOTREXATE [Concomitant]
  3. ANTIBIOTICS FOR IBD [Concomitant]
     Indication: INFLAMMATORY BOWEL DISEASE
  4. FERROUS SULFATE TAB [Concomitant]
  5. REMICADE [Suspect]
     Route: 042
     Dates: start: 20120322
  6. PREDNISONE [Concomitant]
  7. LASOPRAZOLE [Concomitant]
  8. FOLIC ACID [Concomitant]
  9. REMICADE [Suspect]
     Indication: INFLAMMATORY BOWEL DISEASE
     Route: 042
     Dates: start: 20110624

REACTIONS (1)
  - IRON DEFICIENCY ANAEMIA [None]
